FAERS Safety Report 9452497 (Version 1)
Quarter: 2013Q3

REPORT INFORMATION
  Report Type: Spontaneous
  Country: US (occurrence: US)
  Receive Date: 20130812
  Receipt Date: 20130812
  Transmission Date: 20140515
  Serious: No
  Sender: FDA-Public Use
  Company Number: US-PFIZER INC-2013226958

PATIENT
  Sex: Male

DRUGS (1)
  1. CHAMPIX [Suspect]
     Indication: SMOKING CESSATION THERAPY
     Dosage: UNK

REACTIONS (10)
  - Insomnia [Unknown]
  - Pharyngeal oedema [Unknown]
  - Nausea [Unknown]
  - Balance disorder [Unknown]
  - Sleep terror [Unknown]
  - Headache [Unknown]
  - Lacrimation increased [Unknown]
  - Eye pain [Unknown]
  - Anxiety [Unknown]
  - Feeling abnormal [Unknown]
